FAERS Safety Report 7611282-7 (Version None)
Quarter: 2011Q3

REPORT INFORMATION
  Report Type: 
  Country: None (occurrence: None)
  Receive Date: 20110707
  Receipt Date: 20110628
  Transmission Date: 20111222
  Serious: Yes (Hospitalization, Other)
  Sender: FDA-Public Use
  Company Number: JPI-P-015639

PATIENT
  Age: 63 Year
  Sex: Male
  Weight: 86.1834 kg

DRUGS (9)
  1. ACYCLOVIR [Concomitant]
  2. TAMSULOSIN HCL [Concomitant]
  3. LISINOPRIL [Concomitant]
  4. CARVEDILOL [Concomitant]
  5. DEXTROAMPHETAMINE AND AMPHETAMINE [Concomitant]
  6. ESCITALOPRAM [Concomitant]
  7. BUPROPION HCL [Concomitant]
  8. XYREM [Suspect]
     Indication: NARCOLEPSY
     Dosage: (2 IN 1 D), ORAL; 6 GM (3 GM, 2 IN 1 D), ORAL
     Route: 048
     Dates: start: 20060501
  9. SULFAMETHOXAZOLE [Concomitant]

REACTIONS (1)
  - MANTLE CELL LYMPHOMA RECURRENT [None]
